FAERS Safety Report 20418088 (Version 1)
Quarter: 2022Q1

REPORT INFORMATION
  Report Type: Spontaneous
  Country: DE (occurrence: DE)
  Receive Date: 20220202
  Receipt Date: 20220202
  Transmission Date: 20220423
  Serious: Yes (Hospitalization, Other)
  Sender: FDA-Public Use
  Company Number: None

PATIENT
  Age: 34 Year
  Sex: Female
  Weight: 57 kg

DRUGS (5)
  1. CIPROFLOXACIN [Suspect]
     Active Substance: CIPROFLOXACIN
     Indication: Pyelonephritis
     Dosage: 1-0-1, TOTAL INTAKE OF 3 TABLETS
     Route: 048
     Dates: start: 20211105, end: 20211106
  2. CIPROFLOXACIN [Suspect]
     Active Substance: CIPROFLOXACIN
     Indication: Costovertebral angle tenderness
  3. CIPROFLOXACIN [Suspect]
     Active Substance: CIPROFLOXACIN
     Indication: Urinary tract infection
  4. CEFUROXIME AXETIL [Suspect]
     Active Substance: CEFUROXIME AXETIL
     Indication: Pyelonephritis
     Dosage: 500 MG, 1-0-1
     Route: 048
     Dates: start: 20211107, end: 20211112
  5. CEFUROXIME AXETIL [Suspect]
     Active Substance: CEFUROXIME AXETIL
     Indication: Urinary tract infection

REACTIONS (72)
  - Syncope [Recovering/Resolving]
  - Haematochezia [Recovering/Resolving]
  - Hospitalisation [Recovering/Resolving]
  - Paralysis [Unknown]
  - Insomnia [Not Recovered/Not Resolved]
  - Impaired driving ability [Unknown]
  - Hunger [Unknown]
  - Dyspnoea [Recovering/Resolving]
  - Dacryostenosis acquired [Not Recovered/Not Resolved]
  - Thirst [Unknown]
  - Ocular discomfort [Not Recovered/Not Resolved]
  - Headache [Not Recovered/Not Resolved]
  - Peripheral swelling [Not Recovered/Not Resolved]
  - Heart rate increased [Recovering/Resolving]
  - Swollen tongue [Recovering/Resolving]
  - Anorectal discomfort [Recovering/Resolving]
  - Hypoaesthesia [Not Recovered/Not Resolved]
  - Loss of personal independence in daily activities [Unknown]
  - Orthopnoea [Recovered/Resolved]
  - Hyperhidrosis [Not Recovered/Not Resolved]
  - Paraesthesia [Recovering/Resolving]
  - Paraesthesia [Recovering/Resolving]
  - Skin burning sensation [Not Recovered/Not Resolved]
  - Limb discomfort [Not Recovered/Not Resolved]
  - Panic attack [Not Recovered/Not Resolved]
  - Tendon pain [Not Recovered/Not Resolved]
  - Impaired self-care [Recovered/Resolved]
  - Back pain [Not Recovered/Not Resolved]
  - Intestinal haemorrhage [Recovering/Resolving]
  - Dyspnoea exertional [Recovered/Resolved]
  - Angina pectoris [Recovering/Resolving]
  - Pain in extremity [Not Recovered/Not Resolved]
  - Dry mouth [Not Recovered/Not Resolved]
  - General physical health deterioration [Not Recovered/Not Resolved]
  - Fatigue [Recovering/Resolving]
  - Chills [Unknown]
  - Pain [Not Recovered/Not Resolved]
  - Sleep disorder [Not Recovered/Not Resolved]
  - Arthralgia [Not Recovered/Not Resolved]
  - Dry eye [Not Recovered/Not Resolved]
  - Hypoaesthesia [Not Recovered/Not Resolved]
  - Pain in extremity [Not Recovered/Not Resolved]
  - Hypertension [Recovering/Resolving]
  - Vision blurred [Unknown]
  - Paraesthesia [Not Recovered/Not Resolved]
  - Skin discolouration [Recovered/Resolved]
  - Polyarthritis [Not Recovered/Not Resolved]
  - Bed rest [Unknown]
  - Temperature intolerance [Not Recovered/Not Resolved]
  - Photophobia [Not Recovered/Not Resolved]
  - Hypotension [Recovering/Resolving]
  - Nausea [Recovering/Resolving]
  - Nerve injury [Unknown]
  - Muscular weakness [Not Recovered/Not Resolved]
  - Skin discolouration [Not Recovered/Not Resolved]
  - Hyperacusis [Not Recovered/Not Resolved]
  - Constipation [Recovering/Resolving]
  - Pain in extremity [Not Recovered/Not Resolved]
  - Sensory disturbance [Recovering/Resolving]
  - Tachycardia [Recovering/Resolving]
  - Impaired work ability [Unknown]
  - Visual impairment [Recovering/Resolving]
  - Joint swelling [Not Recovered/Not Resolved]
  - Performance status decreased [Recovering/Resolving]
  - Muscle spasms [Unknown]
  - Asthenia [Recovering/Resolving]
  - Fatigue [Unknown]
  - Myalgia [Not Recovered/Not Resolved]
  - Tremor [Recovered/Resolved]
  - Anorectal discomfort [Recovering/Resolving]
  - Visual impairment [Not Recovered/Not Resolved]
  - Parosmia [Not Recovered/Not Resolved]

NARRATIVE: CASE EVENT DATE: 20211101
